FAERS Safety Report 4773954-1 (Version None)
Quarter: 2005Q3

REPORT INFORMATION
  Report Type: 
  Country: None (occurrence: None)
  Receive Date: 20050920
  Receipt Date: 20050816
  Transmission Date: 20060218
  Serious: Yes (Life-Threatening, Hospitalization, Disabling)
  Sender: FDA-Public Use
  Company Number: 200512367JP

PATIENT
  Age: 77 Year
  Sex: Male
  Weight: 58.9 kg

DRUGS (4)
  1. TAXOTERE [Suspect]
     Indication: OESOPHAGEAL CARCINOMA
     Route: 041
     Dates: start: 20050811, end: 20050811
  2. DECADRON [Concomitant]
     Indication: ANAPHYLAXIS PROPHYLAXIS
     Route: 041
     Dates: start: 20050811, end: 20050812
  3. SEROTONE [Concomitant]
     Indication: PROPHYLAXIS OF NAUSEA AND VOMITING
     Route: 041
     Dates: start: 20050811, end: 20050811
  4. LOXONIN [Concomitant]
     Indication: SHOULDER PAIN
     Route: 048
     Dates: start: 20050812

REACTIONS (13)
  - ANURIA [None]
  - BEDRIDDEN [None]
  - BLOOD CREATININE INCREASED [None]
  - BLOOD PRESSURE DECREASED [None]
  - BONE MARROW DEPRESSION [None]
  - DEPRESSED LEVEL OF CONSCIOUSNESS [None]
  - HAEMODIALYSIS [None]
  - PLATELET COUNT DECREASED [None]
  - PNEUMONIA STAPHYLOCOCCAL [None]
  - PYREXIA [None]
  - RHABDOMYOLYSIS [None]
  - SEPTIC SHOCK [None]
  - WHITE BLOOD CELL COUNT DECREASED [None]
